FAERS Safety Report 5516841-3 (Version None)
Quarter: 2007Q4

REPORT INFORMATION
  Report Type: 
  Country: None (occurrence: None)
  Receive Date: 20071109
  Receipt Date: 20071026
  Transmission Date: 20080405
  Serious: Yes (Other)
  Sender: FDA-Public Use
  Company Number: 2007S1011128

PATIENT
  Age: 45 Year
  Sex: Female
  Weight: 110 kg

DRUGS (3)
  1. MIRTAZAPINE [Suspect]
     Indication: DEPRESSION
     Dosage: 30 MG; ORAL
     Route: 048
     Dates: start: 20070810, end: 20070928
  2. QUININE [Concomitant]
  3. RISPERIDONE [Concomitant]

REACTIONS (1)
  - JOINT SWELLING [None]
